FAERS Safety Report 4869070-0 (Version None)
Quarter: 2005Q4

REPORT INFORMATION
  Report Type: 
  Country: None (occurrence: None)
  Receive Date: 20051221
  Receipt Date: 20051205
  Transmission Date: 20060501
  Serious: Yes (Other)
  Sender: FDA-Public Use
  Company Number: 05-507

PATIENT
  Age: 51 Year
  Sex: Female

DRUGS (4)
  1. ALBUMIN (HUMAN)  U.S.P. ALBUTEIN 5% SOLUTION [Suspect]
     Indication: CORONARY ARTERY DISEASE
     Dosage: FREQ. X1: IV
     Route: 042
     Dates: start: 20051202
  2. ROCURONIUM BROMIDE [Concomitant]
  3. CEFAZOLIN [Concomitant]
  4. HEPARIN [Concomitant]

REACTIONS (3)
  - SHOCK [None]
  - VASODILATATION [None]
  - VENTRICULAR FIBRILLATION [None]
